FAERS Safety Report 6901373-8 (Version None)
Quarter: 2010Q3

REPORT INFORMATION
  Report Type: 
  Country: None (occurrence: None)
  Receive Date: 20100803
  Receipt Date: 20080115
  Transmission Date: 20110219
  Serious: No
  Sender: FDA-Public Use
  Company Number: US-PFIZER INC-2008005787

PATIENT
  Sex: Female
  Weight: 68 kg

DRUGS (7)
  1. LYRICA [Suspect]
     Indication: NEUROPATHY PERIPHERAL
     Dates: start: 20070101
  2. OXYCODONE HCL AND ACETAMINOPHEN [Concomitant]
  3. AVANDIA [Concomitant]
  4. NEXIUM [Concomitant]
  5. TOPAMAX [Concomitant]
  6. METHADONE HCL [Concomitant]
  7. EFFEXOR [Concomitant]

REACTIONS (4)
  - ERYTHEMA [None]
  - PRURITUS [None]
  - SKIN ATROPHY [None]
  - SKIN DEPIGMENTATION [None]
